FAERS Safety Report 24366780 (Version 2)
Quarter: 2024Q4

REPORT INFORMATION
  Report Type: Spontaneous
  Country: JP (occurrence: JP)
  Receive Date: 20240926
  Receipt Date: 20241219
  Transmission Date: 20250114
  Serious: Yes (Other)
  Sender: REGENERON
  Company Number: JP-BAYER-2024A136616

PATIENT
  Age: 70 Year
  Sex: Male

DRUGS (1)
  1. EYLEA HD [Suspect]
     Active Substance: AFLIBERCEPT
     Indication: Diabetic retinal oedema
     Dosage: 8 MG, LEFT EYE, SOLUTION FOR INJECTION, 114.3 MG/ML
     Dates: start: 20240912

REACTIONS (5)
  - Blindness [Recovering/Resolving]
  - Endophthalmitis [Recovering/Resolving]
  - Intraocular pressure increased [Recovering/Resolving]
  - Eye pain [Recovering/Resolving]
  - Vision blurred [Recovering/Resolving]

NARRATIVE: CASE EVENT DATE: 20240912
